FAERS Safety Report 25058485 (Version 1)
Quarter: 2025Q1

REPORT INFORMATION
  Report Type: Spontaneous
  Country: US (occurrence: US)
  Receive Date: 20250310
  Receipt Date: 20250310
  Transmission Date: 20250409
  Serious: Yes (Other)
  Sender: PFIZER
  Company Number: US-PFIZER INC-202500051047

PATIENT
  Sex: Male

DRUGS (2)
  1. LORBRENA [Suspect]
     Active Substance: LORLATINIB
     Indication: Non-small cell lung cancer
     Dates: start: 2025, end: 2025
  2. LORBRENA [Suspect]
     Active Substance: LORLATINIB
     Dates: start: 2025

REACTIONS (4)
  - Sphincter of Oddi dysfunction [Unknown]
  - Peripheral swelling [Unknown]
  - Hypoaesthesia oral [Unknown]
  - Dry mouth [Unknown]

NARRATIVE: CASE EVENT DATE: 20250101
